FAERS Safety Report 14113407 (Version 2)
Quarter: 2018Q1

REPORT INFORMATION
  Report Type: Report from Study
  Country: None (occurrence: US)
  Receive Date: 20171023
  Receipt Date: 20180305
  Transmission Date: 20180508
  Serious: Yes (Hospitalization, Other)
  Sender: FDA-Public Use
  Company Number: US-ABBVIE-17K-163-1922805-00

PATIENT
  Sex: Female

DRUGS (2)
  1. HUMIRA [Suspect]
     Active Substance: ADALIMUMAB
     Indication: PSORIASIS
     Route: 058
     Dates: end: 201707
  2. HUMIRA [Suspect]
     Active Substance: ADALIMUMAB
     Route: 058
     Dates: start: 2017, end: 201712

REACTIONS (8)
  - Headache [Recovering/Resolving]
  - Fall [Recovering/Resolving]
  - Viral infection [Recovered/Resolved]
  - Psoriasis [Recovered/Resolved]
  - Nausea [Recovering/Resolving]
  - Post-traumatic pain [Recovering/Resolving]
  - Ankle operation [Recovered/Resolved]
  - Skin plaque [Recovered/Resolved]

NARRATIVE: CASE EVENT DATE: 2017
